FAERS Safety Report 5067641-2 (Version None)
Quarter: 2006Q3

REPORT INFORMATION
  Report Type: 
  Country: None (occurrence: None)
  Receive Date: 20060727
  Receipt Date: 20060713
  Transmission Date: 20061208
  Serious: Yes (Death)
  Sender: FDA-Public Use
  Company Number: 35830

PATIENT
  Age: 41 Year
  Sex: Female

DRUGS (2)
  1. ALCAINE [Suspect]
     Indication: INTRAOCULAR PRESSURE TEST
     Dosage: OPHT     {1 MONTH
     Route: 047
     Dates: start: 20060201, end: 20060201
  2. MYDRIACYL [Suspect]
     Indication: FUNDOSCOPY
     Dosage: OPHT
     Route: 047
     Dates: start: 20060201

REACTIONS (3)
  - CARDIAC ARREST [None]
  - MALAISE [None]
  - MYOCARDIAL INFARCTION [None]
